FAERS Safety Report 9088666 (Version 1)
Quarter: 2013Q1

REPORT INFORMATION
  Report Type: Report from Study
  Country: US (occurrence: US)
  Receive Date: 20130201
  Receipt Date: 20130201
  Transmission Date: 20140127
  Serious: No
  Sender: FDA-Public Use
  Company Number: US-ABBOTT-12P-163-1025006-00

PATIENT
  Age: 35 Year
  Sex: Female

DRUGS (6)
  1. HUMIRA [Suspect]
     Indication: CROHN^S DISEASE
     Dates: start: 20121010
  2. NEXIUM [Concomitant]
     Indication: IRRITABLE BOWEL SYNDROME
     Dosage: 40MG DAILY
  3. 6MP [Concomitant]
     Indication: CROHN^S DISEASE
     Dosage: 50MG DAILY
  4. SUPER B COMPLEX [Concomitant]
     Indication: MEDICAL DIET
     Dosage: DAILY
  5. MULTIVITAMIN [Concomitant]
     Indication: MEDICAL DIET
     Dosage: DAILY
  6. FIBER [Concomitant]
     Indication: MEDICAL DIET
     Dosage: DAILY

REACTIONS (4)
  - Injection site haemorrhage [Unknown]
  - Skin operation [Unknown]
  - Device malfunction [Unknown]
  - Incorrect dose administered [Unknown]
